FAERS Safety Report 6840849-9 (Version None)
Quarter: 2010Q3

REPORT INFORMATION
  Report Type: 
  Country: None (occurrence: None)
  Receive Date: 20100714
  Receipt Date: 20061216
  Transmission Date: 20110219
  Serious: No
  Sender: FDA-Public Use
  Company Number: US-PFIZER INC-2006156063

PATIENT
  Sex: Female
  Weight: 62.14 kg

DRUGS (4)
  1. CHANTIX [Suspect]
     Indication: SMOKING CESSATION THERAPY
     Route: 048
     Dates: start: 20061120
  2. FEMHRT [Concomitant]
  3. VYTORIN [Concomitant]
  4. VITAMINS [Concomitant]

REACTIONS (3)
  - ABNORMAL DREAMS [None]
  - LABORATORY TEST ABNORMAL [None]
  - NAUSEA [None]
